FAERS Safety Report 24972279 (Version 8)
Quarter: 2025Q2

REPORT INFORMATION
  Report Type: Report from Study
  Country: ES (occurrence: ES)
  Receive Date: 20250214
  Receipt Date: 20250418
  Transmission Date: 20250716
  Serious: Yes (Hospitalization, Other)
  Sender: ABBVIE
  Company Number: ES-ABBVIE-5998213

PATIENT
  Age: 67 Year
  Sex: Male

DRUGS (10)
  1. FOSCARBIDOPA\FOSLEVODOPA [Suspect]
     Active Substance: FOSCARBIDOPA\FOSLEVODOPA
     Indication: Parkinson^s disease
     Route: 050
     Dates: start: 20211105, end: 20241028
  2. FOSCARBIDOPA\FOSLEVODOPA [Suspect]
     Active Substance: FOSCARBIDOPA\FOSLEVODOPA
  3. FOSCARBIDOPA\FOSLEVODOPA [Suspect]
     Active Substance: FOSCARBIDOPA\FOSLEVODOPA
     Indication: Parkinson^s disease
     Route: 058
     Dates: start: 20241028, end: 202411
  4. FOSCARBIDOPA\FOSLEVODOPA [Suspect]
     Active Substance: FOSCARBIDOPA\FOSLEVODOPA
     Route: 058
     Dates: end: 20250213
  5. FOSCARBIDOPA\FOSLEVODOPA [Suspect]
     Active Substance: FOSCARBIDOPA\FOSLEVODOPA
     Route: 058
     Dates: start: 20250213
  6. FOSCARBIDOPA\FOSLEVODOPA [Suspect]
     Active Substance: FOSCARBIDOPA\FOSLEVODOPA
     Route: 058
  7. FOSCARBIDOPA\FOSLEVODOPA [Suspect]
     Active Substance: FOSCARBIDOPA\FOSLEVODOPA
     Route: 058
  8. SINEMET [Concomitant]
     Active Substance: CARBIDOPA\LEVODOPA
     Indication: Product used for unknown indication
  9. QUETIAPINE [Concomitant]
     Active Substance: QUETIAPINE
     Indication: Product used for unknown indication
  10. QUETIAPINE [Concomitant]
     Active Substance: QUETIAPINE
     Indication: Product used for unknown indication

REACTIONS (26)
  - Aggression [Not Recovered/Not Resolved]
  - Derealisation [Not Recovered/Not Resolved]
  - Urinary tract infection [Recovered/Resolved]
  - Puncture site infection [Recovering/Resolving]
  - Puncture site inflammation [Unknown]
  - Tremor [Recovered/Resolved]
  - Agitation [Not Recovered/Not Resolved]
  - Nervousness [Not Recovered/Not Resolved]
  - Erythema [Recovered/Resolved]
  - Injection site nodule [Recovered/Resolved]
  - Pain [Unknown]
  - Hallucination, visual [Not Recovered/Not Resolved]
  - Paranoia [Unknown]
  - Suicide attempt [Unknown]
  - Psychotic disorder [Not Recovered/Not Resolved]
  - Suicidal ideation [Unknown]
  - Thinking abnormal [Unknown]
  - Delusion [Unknown]
  - General physical health deterioration [Not Recovered/Not Resolved]
  - Puncture site erythema [Unknown]
  - Injection site erythema [Unknown]
  - Administration site warmth [Recovered/Resolved]
  - Administration site nodule [Recovering/Resolving]
  - Administration site warmth [Unknown]
  - Administration site nodule [Unknown]
  - Drug ineffective [Unknown]

NARRATIVE: CASE EVENT DATE: 20240101
